FAERS Safety Report 8786341 (Version 1)
Quarter: 2012Q4

REPORT INFORMATION
  Report Type: Spontaneous
  Country: TR (occurrence: None)
  Receive Date: 20120905
  Receipt Date: 20120905
  Transmission Date: 20130627
  Serious: Yes (Other)
  Sender: FDA-Public Use
  Company Number: 1398857

PATIENT
  Age: 15 Year
  Sex: Female

DRUGS (3)
  1. FENTANYL CITRATE [Suspect]
     Indication: TONSILLECTOMY
  2. PENTHOTAL [Suspect]
     Indication: TONSILLECTOMY
  3. SUCCINYLCHOLINE [Suspect]
     Indication: TONSILLECTOMY

REACTIONS (2)
  - Convulsion [None]
  - Myoclonus [None]
